FAERS Safety Report 11213420 (Version 1)
Quarter: 2015Q2

REPORT INFORMATION
  Report Type: Spontaneous
  Country: JP (occurrence: JP)
  Receive Date: 20150623
  Receipt Date: 20150623
  Transmission Date: 20150821
  Serious: Yes (Other)
  Sender: FDA-Public Use
  Company Number: JP-AKORN PHARMACEUTICALS-2015AKN00360

PATIENT
  Age: 65 Year
  Sex: Female

DRUGS (3)
  1. TRIAMCINOLONE ACETONIDE. [Suspect]
     Active Substance: TRIAMCINOLONE ACETONIDE
     Indication: IRIDOCYCLITIS
     Dosage: UNK
     Route: 057
  2. ATROPINE [Concomitant]
     Active Substance: ATROPINE
     Indication: IRIDOCYCLITIS
     Dosage: UNK, 1X/DAY
     Route: 047
  3. DEXAMETHASONE. [Suspect]
     Active Substance: DEXAMETHASONE
     Indication: IRIDOCYCLITIS
     Route: 047

REACTIONS (2)
  - Cataract [Recovering/Resolving]
  - Ophthalmic herpes simplex [Recovering/Resolving]
